FAERS Safety Report 23147854 (Version 4)
Quarter: 2023Q4

REPORT INFORMATION
  Report Type: Report from Study
  Country: US (occurrence: US)
  Receive Date: 20231106
  Receipt Date: 20231129
  Transmission Date: 20240110
  Serious: Yes (Hospitalization)
  Sender: FDA-Public Use
  Company Number: US-002147023-NVSC2023US234676

PATIENT
  Sex: Male

DRUGS (6)
  1. TASIGNA [Suspect]
     Active Substance: NILOTINIB
     Indication: Rash
     Dosage: UNK
     Route: 065
  2. TASIGNA [Suspect]
     Active Substance: NILOTINIB
     Indication: Pruritus
  3. TASIGNA [Suspect]
     Active Substance: NILOTINIB
     Indication: Diarrhoea
  4. TASIGNA [Suspect]
     Active Substance: NILOTINIB
     Indication: Asthenia
  5. TASIGNA [Suspect]
     Active Substance: NILOTINIB
     Indication: Chronic myeloid leukaemia
  6. TASIGNA [Suspect]
     Active Substance: NILOTINIB
     Indication: Herpes zoster

REACTIONS (5)
  - Rash [Unknown]
  - Pruritus [Unknown]
  - Diarrhoea [Unknown]
  - Asthenia [Unknown]
  - Product use in unapproved indication [Unknown]
